FAERS Safety Report 5154982-3 (Version None)
Quarter: 2006Q4

REPORT INFORMATION
  Report Type: 
  Country: None (occurrence: None)
  Receive Date: 20061121
  Receipt Date: 20060907
  Transmission Date: 20070319
  Serious: Yes (Death, Hospitalization)
  Sender: FDA-Public Use
  Company Number: AR-ELI_LILLY_AND_COMPANY-AR200609001664

PATIENT
  Age: 35 Year
  Sex: Female

DRUGS (12)
  1. XIGRIS [Suspect]
     Indication: UROSEPSIS
     Dosage: UNK, UNKNOWN
     Route: 065
     Dates: start: 20060901, end: 20060904
  2. VALPROIC ACID [Concomitant]
     Indication: CONVULSION
     Dosage: UNK, UNKNOWN
     Route: 065
  3. NORADRENALINE [Concomitant]
     Dosage: 80 UNK, DAILY (1/D)
     Route: 065
     Dates: start: 20060901
  4. NORADRENALINE [Concomitant]
     Dosage: 40 UG, DAILY (1/D)
     Dates: start: 20060902
  5. NORADRENALINE [Concomitant]
     Dosage: 10 UG, DAILY (1/D)
     Route: 065
     Dates: start: 20060903, end: 20060903
  6. FUROSEMIDE [Concomitant]
     Indication: DIURETIC THERAPY
     Dosage: UNK , UNK
     Route: 065
     Dates: start: 20060901, end: 20060903
  7. REMIFENTANIL [Concomitant]
     Indication: INTUBATION
     Dosage: UNK, UNKNOWN
     Route: 065
  8. MIDAZOLAM [Concomitant]
     Indication: SLEEP DISORDER
     Dosage: UNK, UNKNOWN
     Route: 065
  9. PIPERACILLIN W/TAZOBACTAM [Concomitant]
     Indication: ANTIBIOTIC PROPHYLAXIS
     Dosage: UNK, UNKNOWN
     Route: 065
  10. AMIKACIN [Concomitant]
     Indication: ANTIBIOTIC PROPHYLAXIS
     Dosage: UNK, UNKNOWN
     Route: 065
  11. RANITIDINE [Concomitant]
     Indication: PROPHYLAXIS
     Dosage: UNK, UNKNOWN
     Route: 065
  12. HEPARIN [Concomitant]
     Indication: PROPHYLAXIS
     Dosage: 0.3 MG, UNKNOWN
     Route: 058
     Dates: start: 20060829, end: 20060904

REACTIONS (3)
  - BRAIN DEATH [None]
  - HAEMORRHAGE INTRACRANIAL [None]
  - THROMBOCYTOPENIA [None]
